FAERS Safety Report 15268953 (Version 2)
Quarter: 2018Q3

REPORT INFORMATION
  Report Type: Spontaneous
  Country: ES (occurrence: ES)
  Receive Date: 20180813
  Receipt Date: 20180920
  Transmission Date: 20181010
  Serious: Yes (Other)
  Sender: FDA-Public Use
  Company Number: ES-TEVA-2018-ES-942310

PATIENT
  Age: 12 Year
  Sex: Male

DRUGS (1)
  1. LINEZOLID. [Suspect]
     Active Substance: LINEZOLID
     Route: 065

REACTIONS (9)
  - Thrombocytopenia [Recovered/Resolved]
  - Osteoarthritis [Unknown]
  - Leukopenia [Recovered/Resolved]
  - Bone marrow failure [Unknown]
  - Osteomyelitis [Unknown]
  - Normocytic anaemia [Recovered/Resolved]
  - Bone marrow failure [Recovered/Resolved]
  - Gastrointestinal disorder [Unknown]
  - Weight decreased [Unknown]
